FAERS Safety Report 6443542-X (Version None)
Quarter: 2009Q4

REPORT INFORMATION
  Report Type: 
  Country: None (occurrence: None)
  Receive Date: 20091117
  Receipt Date: 20090902
  Transmission Date: 20100525
  Serious: Yes (Life-Threatening, Hospitalization)
  Sender: FDA-Public Use
  Company Number: DK-PFIZER INC-2009169768

PATIENT
  Age: 63 Year
  Sex: Male
  Weight: 95 kg

DRUGS (5)
  1. AMLODIPINE [Suspect]
     Dosage: 10 MG, UNK
     Dates: end: 20090323
  2. SUNITINIB [Concomitant]
     Indication: METASTATIC RENAL CELL CARCINOMA
     Dosage: 50 MG, FOR 28 DAYS FOLLOWED BY 4 WEEKS PAUSE
     Route: 048
     Dates: start: 20071024, end: 20090119
  3. ZOLADEX [Concomitant]
     Indication: PROSTATE CANCER
     Dosage: 10.8 MG, EVERY 3 WKS, IMPLANT
     Route: 050
     Dates: start: 20070125, end: 20090201
  4. CENTYL MED KALIUMKLORID [Concomitant]
     Indication: HYPERTENSION
     Dosage: 10 MG, TABLET
     Route: 048
     Dates: end: 20090323
  5. SORAFENIB [Concomitant]
     Dosage: 400 MG, 2X/DAY
     Dates: start: 20090217, end: 20090317

REACTIONS (1)
  - ANGIOEDEMA [None]
